FAERS Safety Report 19105859 (Version 6)
Quarter: 2021Q3

REPORT INFORMATION
  Report Type: Report from Study
  Country: US (occurrence: US)
  Receive Date: 20210407
  Receipt Date: 20210715
  Transmission Date: 20211014
  Serious: Yes (Hospitalization, Other)
  Sender: FDA-Public Use
  Company Number: US-JNJFOC-20201217994

PATIENT
  Age: 74 Year
  Sex: Female
  Weight: 49.49 kg

DRUGS (7)
  1. TYVASO [Concomitant]
     Active Substance: TREPROSTINIL
     Indication: PULMONARY ARTERIAL HYPERTENSION
     Dosage: DOSE CHANGED FROM 7 BREATH TO 1 BREATH PER SESSION
  2. MACITENTAN [Suspect]
     Active Substance: MACITENTAN
     Indication: PULMONARY ARTERIAL HYPERTENSION
     Dosage: FIRST SHIP DATE 07?JUL?2020, LAST SHIP DATE 16?SEP?2020
     Route: 048
     Dates: start: 202007
  3. MACITENTAN [Suspect]
     Active Substance: MACITENTAN
     Route: 048
  4. URSODIOL. [Concomitant]
     Active Substance: URSODIOL
     Indication: HEPATIC CIRRHOSIS
  5. MACITENTAN [Suspect]
     Active Substance: MACITENTAN
     Route: 048
     Dates: start: 202006
  6. ADEMPAS [Concomitant]
     Active Substance: RIOCIGUAT
     Indication: PULMONARY ARTERIAL HYPERTENSION
  7. ELIQUIS [Concomitant]
     Active Substance: APIXABAN

REACTIONS (20)
  - Decreased appetite [Unknown]
  - Asthenia [Unknown]
  - Lactose intolerance [Unknown]
  - Memory impairment [Not Recovered/Not Resolved]
  - COVID-19 [Recovered/Resolved]
  - Depression [Not Recovered/Not Resolved]
  - Respiratory tract infection fungal [Unknown]
  - Hypotension [Recovered/Resolved]
  - Weight decreased [Not Recovered/Not Resolved]
  - Oxygen therapy [Unknown]
  - Contusion [Not Recovered/Not Resolved]
  - Inflammation [Unknown]
  - Hypoacusis [Not Recovered/Not Resolved]
  - Ear infection [Not Recovered/Not Resolved]
  - Fall [Recovered/Resolved]
  - Diarrhoea [Unknown]
  - Muscular weakness [Unknown]
  - Product dose omission issue [Recovered/Resolved]
  - Malaise [Not Recovered/Not Resolved]
  - Dysphagia [Recovered/Resolved]

NARRATIVE: CASE EVENT DATE: 202012
